FAERS Safety Report 7821950-X (Version None)
Quarter: 2011Q4

REPORT INFORMATION
  Report Type: 
  Country: None (occurrence: None)
  Receive Date: 20111018
  Receipt Date: 20110215
  Transmission Date: 20120403
  Serious: No
  Sender: FDA-Public Use
  Company Number: US-ASTRAZENECA-2011SE09006

PATIENT
  Age: 33 Year
  Sex: Female

DRUGS (4)
  1. SYMBICORT [Suspect]
     Indication: ASTHMA
     Dosage: 80-4.5 MCG BID
     Route: 055
     Dates: start: 20110101
  2. SINGULAIR [Concomitant]
  3. CLARITIN-D 24 HOUR [Concomitant]
  4. VERAMYST [Concomitant]

REACTIONS (3)
  - ASTHMA [None]
  - DRUG INEFFECTIVE [None]
  - DYSPNOEA [None]
